FAERS Safety Report 17931879 (Version 1)
Quarter: 2020Q2

REPORT INFORMATION
  Report Type: Report from Study
  Country: None (occurrence: US)
  Receive Date: 20200624
  Receipt Date: 20200624
  Transmission Date: 20200714
  Serious: Yes (Other)
  Sender: FDA-Public Use
  Company Number: US-ABBVIE-20K-163-3450502-00

PATIENT
  Age: 55 Year
  Sex: Male

DRUGS (1)
  1. HUMIRA [Suspect]
     Active Substance: ADALIMUMAB
     Indication: PRODUCT USED FOR UNKNOWN INDICATION
     Route: 058

REACTIONS (13)
  - Stomatitis [Unknown]
  - Respiratory tract congestion [Unknown]
  - Peripheral swelling [Unknown]
  - Nasal congestion [Unknown]
  - Pilonidal cyst [Unknown]
  - Dry skin [Unknown]
  - Pain in extremity [Unknown]
  - Joint swelling [Unknown]
  - Cough [Unknown]
  - Arthralgia [Unknown]
  - Rash papular [Unknown]
  - Abscess limb [Unknown]
  - Skin fissures [Unknown]

NARRATIVE: CASE EVENT DATE: 202004
